FAERS Safety Report 7305890-0 (Version None)
Quarter: 2011Q1

REPORT INFORMATION
  Report Type: 
  Country: None (occurrence: None)
  Receive Date: 20110222
  Receipt Date: 20110214
  Transmission Date: 20110831
  Serious: Yes (Hospitalization)
  Sender: FDA-Public Use
  Company Number: US-ALEXION-A201100186

PATIENT
  Sex: Male

DRUGS (2)
  1. DESFERAL                           /00062903/ [Concomitant]
  2. SOLIRIS [Suspect]
     Indication: PAROXYSMAL NOCTURNAL HAEMOGLOBINURIA
     Dosage: UNK
     Route: 042

REACTIONS (4)
  - LOCALISED INFECTION [None]
  - BLOOD IRON INCREASED [None]
  - TRANSFUSION [None]
  - BLOOD BILIRUBIN INCREASED [None]
